FAERS Safety Report 15301275 (Version 1)
Quarter: 2018Q3

REPORT INFORMATION
  Report Type: Spontaneous
  Country: GB (occurrence: GB)
  Receive Date: 20180821
  Receipt Date: 20180821
  Transmission Date: 20181010
  Serious: Yes (Hospitalization)
  Sender: FDA-Public Use
  Company Number: GB-OXFORD PHARMACEUTICALS, LLC-2018OXF00085

PATIENT
  Age: 53 Year
  Sex: Female

DRUGS (3)
  1. DEMECLOYCLINE [Concomitant]
     Dosage: UNK
     Route: 065
  2. INSULIN [Concomitant]
     Active Substance: INSULIN NOS
     Indication: TYPE 1 DIABETES MELLITUS
     Route: 065
  3. AMLODIPINE [Suspect]
     Active Substance: AMLODIPINE BESYLATE
     Indication: HYPERTENSION
     Dosage: UNK
     Route: 065

REACTIONS (2)
  - Oedema peripheral [Recovered/Resolved]
  - Non-cardiogenic pulmonary oedema [Recovered/Resolved]
